FAERS Safety Report 7030946-X (Version None)
Quarter: 2010Q4

REPORT INFORMATION
  Report Type: 
  Country: None (occurrence: None)
  Receive Date: 20101006
  Receipt Date: 20100930
  Transmission Date: 20110411
  Serious: Yes (Disabling)
  Sender: FDA-Public Use
  Company Number: AU-B.I. PHARMACEUTICALS,INC./RIDGEFIELD-2010-AU-00694AU

PATIENT
  Sex: Male

DRUGS (2)
  1. ASPIRIN AND DIPYRIDAMOLE [Suspect]
     Route: 048
     Dates: end: 20081202
  2. ATORVASTATIN [Concomitant]

REACTIONS (4)
  - BLOOD PRESSURE DECREASED [None]
  - GAIT DISTURBANCE [None]
  - PRESYNCOPE [None]
  - THROMBOCYTOPENIA [None]
